FAERS Safety Report 6375635-X (Version None)
Quarter: 2009Q3

REPORT INFORMATION
  Report Type: 
  Country: None (occurrence: None)
  Receive Date: 20090924
  Receipt Date: 20090917
  Transmission Date: 20100115
  Serious: Yes (Hospitalization, Disabling, Other)
  Sender: FDA-Public Use
  Company Number: US-AMGEN-QUU363571

PATIENT
  Sex: Male

DRUGS (13)
  1. ARANESP [Suspect]
     Indication: RENAL FAILURE CHRONIC
     Route: 058
     Dates: start: 20070613, end: 20090813
  2. LOVENOX [Concomitant]
  3. STARLIX [Concomitant]
  4. ATROVENT [Concomitant]
  5. NOVOLIN R [Concomitant]
  6. FERROUS SULFATE TAB [Concomitant]
  7. LORTAB [Concomitant]
  8. LIPITOR [Concomitant]
  9. AVANDIA [Concomitant]
  10. WELLBUTRIN [Concomitant]
  11. SEROQUEL [Concomitant]
  12. DIOVAN [Concomitant]
  13. DOCUSATE [Concomitant]

REACTIONS (8)
  - APLASIA PURE RED CELL [None]
  - FALL [None]
  - INFECTION [None]
  - JOINT INJURY [None]
  - LIGAMENT INJURY [None]
  - LIMB INJURY [None]
  - SKIN LACERATION [None]
  - STAPHYLOCOCCAL INFECTION [None]
